FAERS Safety Report 4602872-4 (Version None)
Quarter: 2005Q1

REPORT INFORMATION
  Report Type: 
  Country: None (occurrence: None)
  Receive Date: 20050309
  Receipt Date: 20030509
  Transmission Date: 20050727
  Serious: Yes (Disabling)
  Sender: FDA-Public Use
  Company Number: CH-GLAXOSMITHKLINE-B0299371A

PATIENT
  Age: 39 Year
  Sex: Female

DRUGS (3)
  1. NARAMIG [Suspect]
     Indication: MIGRAINE
     Dosage: 2.5MG UNKNOWN
     Route: 048
  2. TRIMIPRAMINE MALEATE [Suspect]
     Indication: SLEEP DISORDER
     Dosage: 40MGML UNKNOWN
     Route: 048
     Dates: end: 20030327
  3. CELECOXIB [Suspect]
     Indication: FIBROMYALGIA
     Dosage: 100MG UNKNOWN
     Route: 048

REACTIONS (1)
  - NORMAL DELIVERY [None]
